FAERS Safety Report 15924929 (Version 2)
Quarter: 2019Q1

REPORT INFORMATION
  Report Type: Spontaneous
  Country: US (occurrence: US)
  Receive Date: 20190205
  Receipt Date: 20190219
  Transmission Date: 20190417
  Serious: No
  Sender: FDA-Public Use
  Company Number: US-ALLERGAN-1837157US

PATIENT
  Sex: Female

DRUGS (1)
  1. BOTOX COSMETIC [Suspect]
     Active Substance: ONABOTULINUMTOXINA
     Indication: PRODUCT USED FOR UNKNOWN INDICATION
     Dosage: 24 UNITS, SINGLE
     Route: 030
     Dates: start: 20180529, end: 20180529

REACTIONS (7)
  - Dizziness [Not Recovered/Not Resolved]
  - Headache [Unknown]
  - Facial paralysis [Unknown]
  - Contusion [Recovered/Resolved]
  - Skin tightness [Unknown]
  - Malaise [Unknown]
  - Feeling abnormal [Unknown]
